FAERS Safety Report 25290627 (Version 1)
Quarter: 2025Q2

REPORT INFORMATION
  Report Type: Spontaneous
  Country: US (occurrence: US)
  Receive Date: 20250510
  Receipt Date: 20250510
  Transmission Date: 20250716
  Serious: Yes (Other)
  Sender: SANOFI AVENTIS
  Company Number: US-SANOFI-02513525

PATIENT
  Age: 85 Year
  Sex: Female

DRUGS (1)
  1. DUPIXENT [Suspect]
     Active Substance: DUPILUMAB
     Indication: Pemphigoid
     Route: 065

REACTIONS (5)
  - Glaucoma [Unknown]
  - Neck pain [Recovering/Resolving]
  - Hypokinesia [Unknown]
  - Cold sweat [Unknown]
  - Off label use [Unknown]

NARRATIVE: CASE EVENT DATE: 20250507
